FAERS Safety Report 7972066-3 (Version None)
Quarter: 2011Q4

REPORT INFORMATION
  Report Type: 
  Country: None (occurrence: None)
  Receive Date: 20111212
  Receipt Date: 20110411
  Transmission Date: 20120403
  Serious: Yes (Death, Hospitalization)
  Sender: FDA-Public Use
  Company Number: FR-ASTRAZENECA-2011SE21062

PATIENT
  Age: 77 Year
  Sex: Female

DRUGS (9)
  1. METHOTREXATE SODIUM [Suspect]
     Indication: SJOGREN'S SYNDROME
     Route: 058
     Dates: start: 20110119
  2. LOSARTAN POTASSIUM AND HYDROCHLOROTHIAZIDE [Suspect]
     Dosage: 100 MG/12.5 MG, DAILY
     Route: 048
     Dates: end: 20110210
  3. ZOLPIDEM [Suspect]
     Route: 048
     Dates: end: 20110210
  4. ISOPTIN [Suspect]
     Route: 048
     Dates: end: 20110210
  5. ASPIRIN [Suspect]
     Route: 048
     Dates: end: 20100210
  6. SPECIAFOLDINE [Concomitant]
  7. PREDNISONE TAB [Suspect]
     Route: 048
     Dates: end: 20100210
  8. CRESTOR [Suspect]
     Indication: HYPERCHOLESTEROLAEMIA
     Route: 048
     Dates: end: 20110208
  9. RABEPRAZOLE SODIUM [Suspect]
     Route: 048
     Dates: end: 20110210

REACTIONS (2)
  - INTERSTITIAL LUNG DISEASE [None]
  - INTESTINAL INFARCTION [None]
